FAERS Safety Report 13524394 (Version 2)
Quarter: 2017Q2

REPORT INFORMATION
  Report Type: Report from Study
  Country: FR (occurrence: FR)
  Receive Date: 20170508
  Receipt Date: 20170516
  Transmission Date: 20170830
  Serious: Yes (Other)
  Sender: FDA-Public Use
  Company Number: FR-GILEAD-2017-0271024

PATIENT
  Sex: Male

DRUGS (6)
  1. IDELALISIB [Suspect]
     Active Substance: IDELALISIB
     Dosage: 100 MG, QD
     Route: 065
     Dates: start: 20170411
  2. ZELITREX [Concomitant]
     Active Substance: VALACYCLOVIR HYDROCHLORIDE
  3. ARANESP [Concomitant]
     Active Substance: DARBEPOETIN ALFA
     Dosage: ^INJ^ AT THE BEGINNING OF TREATMENT
  4. IDELALISIB [Suspect]
     Active Substance: IDELALISIB
     Indication: CHRONIC LYMPHOCYTIC LEUKAEMIA
     Dosage: 150 MG, BID
     Route: 065
     Dates: start: 201501
  5. IDELALISIB [Suspect]
     Active Substance: IDELALISIB
     Dosage: 200 MG, QD
     Route: 065
     Dates: end: 20170103
  6. SPECIAFOLDINE [Concomitant]
     Active Substance: FOLIC ACID
     Indication: CHRONIC LYMPHOCYTIC LEUKAEMIA
     Route: 065

REACTIONS (3)
  - Haematotoxicity [Unknown]
  - Off label use [Not Recovered/Not Resolved]
  - Lung disorder [Unknown]
